FAERS Safety Report 19933576 (Version 1)
Quarter: 2021Q4

REPORT INFORMATION
  Report Type: Spontaneous
  Country: ES (occurrence: ES)
  Receive Date: 20211008
  Receipt Date: 20211008
  Transmission Date: 20220304
  Serious: Yes (Hospitalization)
  Sender: FDA-Public Use
  Company Number: None

PATIENT
  Age: 71 Year
  Sex: Male

DRUGS (3)
  1. ENALAPRIL\HYDROCHLOROTHIAZIDE [Interacting]
     Active Substance: ENALAPRIL\HYDROCHLOROTHIAZIDE
     Indication: Hypertension
     Dosage: 1 DOSAGE FORM (1 TABLET FOR BREAKFAST)
     Route: 048
     Dates: start: 20191018, end: 20210511
  2. ESLICARBAZEPINE ACETATE [Interacting]
     Active Substance: ESLICARBAZEPINE ACETATE
     Indication: Herpes zoster
     Dosage: UNK (0.5MG EVERY 24H)
     Route: 048
     Dates: start: 20210430, end: 20210511
  3. RIVOTRIL [Concomitant]
     Active Substance: CLONAZEPAM
     Indication: Post herpetic neuralgia
     Dosage: 4 MILLIGRAM, Q8H  (4 EVERY 8 HOURS)
     Route: 048
     Dates: start: 20210430, end: 20210511

REACTIONS (2)
  - Inappropriate antidiuretic hormone secretion [Recovered/Resolved]
  - Drug interaction [Unknown]

NARRATIVE: CASE EVENT DATE: 20210501
